FAERS Safety Report 16229335 (Version 1)
Quarter: 2019Q2

REPORT INFORMATION
  Report Type: Spontaneous
  Country: IT (occurrence: IT)
  Receive Date: 20190423
  Receipt Date: 20190423
  Transmission Date: 20190711
  Serious: Yes (Other)
  Sender: FDA-Public Use
  Company Number: IT-TAKEDA-2019TUS024537

PATIENT
  Age: 79 Year
  Sex: Female

DRUGS (2)
  1. ICLUSIG [Suspect]
     Active Substance: PONATINIB
     Dosage: UNK
     Route: 048
     Dates: start: 20190408
  2. ICLUSIG [Suspect]
     Active Substance: PONATINIB
     Indication: ACUTE LYMPHOCYTIC LEUKAEMIA
     Dosage: 46 MILLIGRAM, QD
     Route: 048
     Dates: start: 20180530, end: 20190401

REACTIONS (1)
  - Ichthyosis acquired [Recovered/Resolved]

NARRATIVE: CASE EVENT DATE: 20190307
